FAERS Safety Report 24328090 (Version 1)
Quarter: 2024Q3

REPORT INFORMATION
  Report Type: Spontaneous
  Country: US (occurrence: US)
  Receive Date: 20240917
  Receipt Date: 20240917
  Transmission Date: 20241017
  Serious: Yes (Other)
  Sender: BAYER
  Company Number: US-BAYER-2024A129621

PATIENT
  Sex: Female

DRUGS (1)
  1. ALKA-SELTZER PLUS NOS [Suspect]
     Active Substance: UNSPECIFIED INGREDIENT
     Indication: Sinus congestion
     Dosage: UNK
     Dates: start: 20240909, end: 20240909

REACTIONS (4)
  - Choking [Not Recovered/Not Resolved]
  - Foreign body in throat [Unknown]
  - Panic reaction [Unknown]
  - Drug ineffective [Not Recovered/Not Resolved]

NARRATIVE: CASE EVENT DATE: 20240909
